FAERS Safety Report 7230467-5 (Version None)
Quarter: 2011Q1

REPORT INFORMATION
  Report Type: 
  Country: None (occurrence: None)
  Receive Date: 20110118
  Receipt Date: 20110113
  Transmission Date: 20110831
  Serious: Yes (Other)
  Sender: FDA-Public Use
  Company Number: US-GENZYME-FABR-1001757

PATIENT
  Sex: Male
  Weight: 30 kg

DRUGS (1)
  1. FABRAZYME [Suspect]
     Indication: FABRY'S DISEASE
     Dosage: 30 MG, Q2W
     Route: 042
     Dates: start: 20040801

REACTIONS (2)
  - AMNESIA [None]
  - TRANSIENT GLOBAL AMNESIA [None]
